FAERS Safety Report 24109832 (Version 1)
Quarter: 2024Q3

REPORT INFORMATION
  Report Type: Report from Study
  Country: FR (occurrence: FR)
  Receive Date: 20240718
  Receipt Date: 20240718
  Transmission Date: 20241017
  Serious: Yes (Other)
  Sender: STEMLINE THERAPEUTICS
  Company Number: None

PATIENT
  Sex: Female
  Weight: 52 kg

DRUGS (4)
  1. ORSERDU [Suspect]
     Active Substance: ELACESTRANT
     Indication: Breast cancer metastatic
     Dosage: 345 MG/DAY
     Route: 048
     Dates: start: 20240306, end: 20240528
  2. ORSERDU [Suspect]
     Active Substance: ELACESTRANT
     Indication: Hormone receptor positive HER2 negative breast cancer
     Dosage: DOSE TO BE REDUCED TO 258 MG (3X86 MG)
     Route: 048
  3. ORSERDU [Suspect]
     Active Substance: ELACESTRANT
     Route: 048
     Dates: start: 20240703
  4. DECAPEPTYL [Concomitant]
     Indication: Breast cancer
     Dosage: 28 DAYS
     Route: 030
     Dates: start: 202207

REACTIONS (3)
  - Drug-induced liver injury [Recovered/Resolved]
  - Aspartate aminotransferase increased [Recovered/Resolved]
  - Alanine aminotransferase increased [Recovered/Resolved]

NARRATIVE: CASE EVENT DATE: 20240506
